FAERS Safety Report 8188593-2 (Version None)
Quarter: 2012Q1

REPORT INFORMATION
  Report Type: 
  Country: None (occurrence: None)
  Receive Date: 20120306
  Receipt Date: 20120305
  Transmission Date: 20120608
  Serious: Yes (Other)
  Sender: FDA-Public Use
  Company Number: PHFR2011IE04251

PATIENT
  Sex: Female

DRUGS (18)
  1. ARIPIPRAZOLE [Concomitant]
     Indication: SCHIZOPHRENIA
     Dosage: 30 MG, DAILY
  2. CLOZARIL [Suspect]
     Dosage: 75MG MANE AND 100MG NOCTE FOR THREE DAYS
     Route: 048
     Dates: start: 20110629
  3. CLOZARIL [Suspect]
     Dosage: 25 MG, QHS FOR TWO DAYS
     Route: 048
  4. HALOPERIDOL [Concomitant]
     Indication: SCHIZOPHRENIA
     Dosage: 5 MG/DAY
     Dates: start: 20110101
  5. CLOZARIL [Suspect]
     Dosage: 50 MG, QHS FOR THREE DAYS
     Route: 048
  6. CLOZARIL [Suspect]
     Dosage: 50MG MANE AND 75MG NOCTE FOR TWO DAYS
     Route: 048
     Dates: start: 20110622
  7. HALOPERIDOL [Concomitant]
     Dosage: 10 MG, DAILY
  8. LEVOTHYROXINE SODIUM [Concomitant]
     Indication: HYPOTHYROIDISM
     Dosage: 10 MG, UNK
  9. ETHINYL ESTRADIOL AND NORETHINDRONE [Concomitant]
     Indication: POLYCYSTIC OVARIES
     Dosage: UNK UKN, UNK
  10. CLOZARIL [Suspect]
     Dosage: 37.5 MG, QHS FOR 3 DAYS
     Route: 048
  11. CLOZARIL [Suspect]
     Dosage: 75MG MANE AND 100MG NOCTE FOR THREE DAYS
     Route: 047
  12. SERTRALINE HYDROCHLORIDE [Concomitant]
     Indication: DEPRESSION
     Dosage: 100 MG, QD, MANE
     Route: 065
     Dates: start: 20110101
  13. CLOZARIL [Suspect]
     Dosage: 75MG MANE AND 100MG NOCTE
     Route: 048
     Dates: start: 20110712
  14. CLOZARIL [Suspect]
     Indication: SCHIZOPHRENIA
     Dosage: 12.5 MG, QHS FOR TWO DAYS
     Route: 048
     Dates: start: 20110608
  15. CLOZARIL [Suspect]
     Dosage: 25 MG, BID FOR TWO DAYS
     Route: 048
     Dates: start: 20110617
  16. CLOZARIL [Suspect]
     Dosage: 25 MANE AND 50MG NOCTE
     Route: 048
  17. CLOZARIL [Suspect]
     Dosage: 75 MG, BID FOR TWO DAYS
     Route: 048
  18. CLOZARIL [Suspect]
     Dosage: 74MG MANE AND 100MG NOCTE
     Route: 048
     Dates: start: 20110705

REACTIONS (12)
  - MYOCARDITIS [None]
  - GASTRIC DISORDER [None]
  - SINUS TACHYCARDIA [None]
  - ELECTROCARDIOGRAM T WAVE ABNORMAL [None]
  - HEART RATE INCREASED [None]
  - BACTERIAL INFECTION [None]
  - ELECTROCARDIOGRAM ABNORMAL [None]
  - DIARRHOEA [None]
  - VOMITING [None]
  - EOSINOPHILIA [None]
  - TACHYCARDIA [None]
  - HYPERSENSITIVITY [None]
